FAERS Safety Report 10430903 (Version 1)
Quarter: 2014Q3

REPORT INFORMATION
  Report Type: Spontaneous
  Country: US (occurrence: None)
  Receive Date: 20140902
  Receipt Date: 20140902
  Transmission Date: 20150326
  Serious: Yes (Other)
  Sender: FDA-Public Use
  Company Number: 2014VER00180

PATIENT
  Age: 15 Year
  Sex: Male

DRUGS (1)
  1. MYORISAN [Suspect]
     Active Substance: ISOTRETINOIN

REACTIONS (7)
  - Depressive symptom [None]
  - Furuncle [None]
  - Localised infection [None]
  - Wound infection staphylococcal [None]
  - Blister [None]
  - Treatment noncompliance [None]
  - Headache [None]
